FAERS Safety Report 25932333 (Version 1)
Quarter: 2025Q4

REPORT INFORMATION
  Report Type: Spontaneous
  Country: CN (occurrence: CN)
  Receive Date: 20251016
  Receipt Date: 20251016
  Transmission Date: 20260117
  Serious: Yes (Life-Threatening, Hospitalization, Other)
  Sender: JOHNSON AND JOHNSON
  Company Number: CN-BAYER-2025A135340

PATIENT
  Age: 86 Year
  Sex: Male

DRUGS (2)
  1. XARELTO [Suspect]
     Active Substance: RIVAROXABAN
     Indication: Anticoagulant therapy
     Dosage: 15 MG, QD
     Route: 048
     Dates: start: 20230505, end: 20250904
  2. CLOPIDOGREL BISULFATE [Suspect]
     Active Substance: CLOPIDOGREL BISULFATE
     Indication: Antiplatelet therapy
     Dosage: 50 MG, QD
     Route: 048
     Dates: start: 20230505, end: 20250904

REACTIONS (17)
  - Acute respiratory failure [Unknown]
  - Pneumonitis aspiration [Unknown]
  - Respiratory distress [Unknown]
  - Oxygen saturation decreased [Recovered/Resolved]
  - Gastrointestinal haemorrhage [Recovering/Resolving]
  - Haematemesis [Unknown]
  - Decreased appetite [Unknown]
  - Productive cough [Unknown]
  - Pyrexia [Unknown]
  - Depressed level of consciousness [Unknown]
  - Blood pressure decreased [Recovering/Resolving]
  - Product use in unapproved indication [Unknown]
  - Product prescribing issue [Unknown]
  - Tachypnoea [Unknown]
  - Heart rate increased [Unknown]
  - Labelled drug-drug interaction issue [Unknown]
  - Diarrhoea [Unknown]

NARRATIVE: CASE EVENT DATE: 20230505
